FAERS Safety Report 18059711 (Version 1)
Quarter: 2020Q3

REPORT INFORMATION
  Report Type: Spontaneous
  Country: US (occurrence: US)
  Receive Date: 20200723
  Receipt Date: 20200723
  Transmission Date: 20201103
  Serious: Yes (Hospitalization)
  Sender: FDA-Public Use
  Company Number: None

PATIENT
  Age: 35 Year
  Sex: Male
  Weight: 109.2 kg

DRUGS (1)
  1. FERAHEME [Suspect]
     Active Substance: FERUMOXYTOL NON-STOICHIOMETRIC MAGNETITE
     Indication: MAGNETIC RESONANCE IMAGING HEART
     Dosage: ?          OTHER FREQUENCY:ONCE FOR MRI CONTR;?
     Route: 040
     Dates: start: 20200713, end: 20200713

REACTIONS (6)
  - Pain in extremity [None]
  - Pallor [None]
  - Chest pain [None]
  - Back pain [None]
  - Defect conduction intraventricular [None]
  - Infusion related reaction [None]

NARRATIVE: CASE EVENT DATE: 20200713
